FAERS Safety Report 19990631 (Version 1)
Quarter: 2021Q4

REPORT INFORMATION
  Report Type: Spontaneous
  Country: US (occurrence: US)
  Receive Date: 20211023
  Receipt Date: 20211023
  Transmission Date: 20220303
  Serious: No
  Sender: FDA-Public Use
  Company Number: None

PATIENT
  Sex: Female

DRUGS (1)
  1. METFORMIN HYDROCHLORIDE [Suspect]
     Active Substance: METFORMIN HYDROCHLORIDE
     Indication: Type 2 diabetes mellitus
     Dosage: ?          QUANTITY:1 TABLET(S);
     Route: 048
     Dates: start: 20211015, end: 20211021

REACTIONS (4)
  - Fatigue [None]
  - Thirst [None]
  - Blood glucose increased [None]
  - Product measured potency issue [None]

NARRATIVE: CASE EVENT DATE: 20211021
